FAERS Safety Report 10951539 (Version 6)
Quarter: 2015Q2

REPORT INFORMATION
  Report Type: Report from Study
  Country: NL (occurrence: NL)
  Receive Date: 20150324
  Receipt Date: 20150528
  Transmission Date: 20150821
  Serious: Yes (Death, Hospitalization)
  Sender: FDA-Public Use
  Company Number: PHHO2015NL004354

PATIENT
  Age: 49 Year
  Sex: Male

DRUGS (4)
  1. SANDIMMUNE [Suspect]
     Active Substance: CYCLOSPORINE
     Indication: STEM CELL TRANSPLANT
     Dosage: 350 MG, BID
     Route: 048
     Dates: start: 20150208, end: 20150221
  2. MYCOPHENOLIC ACID. [Suspect]
     Active Substance: MYCOPHENOLIC ACID
     Dosage: 1000 MG, TID
     Route: 048
     Dates: start: 20150322
  3. SIROLIMUS. [Concomitant]
     Active Substance: SIROLIMUS
     Indication: STEM CELL TRANSPLANT
     Dosage: 6 MG, QD
     Route: 048
     Dates: start: 20150226
  4. MYCOPHENOLIC ACID. [Suspect]
     Active Substance: MYCOPHENOLIC ACID
     Indication: STEM CELL TRANSPLANT
     Dosage: 1000 MG, BID
     Route: 048
     Dates: start: 20150211, end: 20150221

REACTIONS (2)
  - Vanishing bile duct syndrome [Fatal]
  - Hepatic failure [Fatal]

NARRATIVE: CASE EVENT DATE: 20150221
